FAERS Safety Report 5554484-6 (Version None)
Quarter: 2007Q4

REPORT INFORMATION
  Report Type: 
  Country: None (occurrence: None)
  Receive Date: 20071213
  Receipt Date: 20071128
  Transmission Date: 20080405
  Serious: Yes (Hospitalization)
  Sender: FDA-Public Use
  Company Number: ES-ELI_LILLY_AND_COMPANY-ES200712000497

PATIENT
  Age: 55 Year
  Sex: Female

DRUGS (1)
  1. DULOXETINE HYDROCHLORIDE [Suspect]
     Indication: DEPRESSION
     Dosage: 30 MG, DAILY (1/D)
     Route: 048
     Dates: start: 20071110, end: 20071111

REACTIONS (10)
  - ACUTE CORONARY SYNDROME [None]
  - ANXIETY [None]
  - FEELING COLD [None]
  - HYPERVENTILATION [None]
  - HYPOTENSION [None]
  - NAUSEA [None]
  - PALLOR [None]
  - PANCREATIC ENZYMES INCREASED [None]
  - POOR PERIPHERAL CIRCULATION [None]
  - VOMITING [None]
